FAERS Safety Report 15185830 (Version 7)
Quarter: 2019Q1

REPORT INFORMATION
  Report Type: Report from Study
  Country: US (occurrence: US)
  Receive Date: 20180723
  Receipt Date: 20190304
  Transmission Date: 20190417
  Serious: Yes (Hospitalization, Other)
  Sender: FDA-Public Use
  Company Number: US-TESARO, INC-US-2018TSO01753

PATIENT
  Age: 66 Year
  Sex: Female
  Weight: 70 kg

DRUGS (2)
  1. ZEJULA [Suspect]
     Active Substance: NIRAPARIB
     Indication: OVARIAN CANCER
     Dosage: 300 MG, QD
     Route: 048
     Dates: start: 20180319, end: 2018
  2. ZEJULA [Suspect]
     Active Substance: NIRAPARIB
     Dosage: 200 MG, QD
     Route: 048

REACTIONS (24)
  - Hernia repair [Unknown]
  - Nail disorder [Unknown]
  - Balance disorder [Unknown]
  - Alopecia [Unknown]
  - Nausea [Not Recovered/Not Resolved]
  - Arthritis [Unknown]
  - Malaise [Unknown]
  - Cough [Unknown]
  - Retching [Unknown]
  - Computerised tomogram abnormal [Recovered/Resolved]
  - Immunodeficiency [Unknown]
  - Recurrent cancer [Unknown]
  - Bone pain [Unknown]
  - Inflammation [Not Recovered/Not Resolved]
  - Full blood count decreased [Unknown]
  - Dysgeusia [Not Recovered/Not Resolved]
  - Dry mouth [Not Recovered/Not Resolved]
  - Myalgia [Unknown]
  - Fatigue [Unknown]
  - Hypertension [Unknown]
  - Dry throat [Unknown]
  - Liver scan abnormal [Unknown]
  - Disease progression [Unknown]
  - Platelet count decreased [Not Recovered/Not Resolved]

NARRATIVE: CASE EVENT DATE: 2018
